FAERS Safety Report 8226926-9 (Version None)
Quarter: 2012Q1

REPORT INFORMATION
  Report Type: 
  Country: None (occurrence: None)
  Receive Date: 20120322
  Receipt Date: 20111230
  Transmission Date: 20120608
  Serious: No
  Sender: FDA-Public Use
  Company Number: US-MYLANLABS-2012S1000071

PATIENT
  Age: 68 Year
  Sex: Male

DRUGS (5)
  1. ASPIRIN [Concomitant]
  2. DICLOFENAC SODIUM [Suspect]
     Indication: ARTHRALGIA
     Route: 048
     Dates: start: 20111201, end: 20120103
  3. LOSARTAN POTASSIUM [Concomitant]
  4. DICLOFENAC SODIUM [Suspect]
     Route: 048
     Dates: start: 20111201, end: 20120103
  5. PLAVIX [Concomitant]

REACTIONS (2)
  - ARTHRALGIA [None]
  - DRUG INEFFECTIVE [None]
